FAERS Safety Report 7772783-4 (Version None)
Quarter: 2011Q3

REPORT INFORMATION
  Report Type: 
  Country: None (occurrence: None)
  Receive Date: 20110922
  Receipt Date: 20100311
  Transmission Date: 20111222
  Serious: No
  Sender: FDA-Public Use
  Company Number: US-ASTRAZENECA-2010SE25742

PATIENT
  Age: 42 Year
  Sex: Male
  Weight: 131.5 kg

DRUGS (12)
  1. ABILIFY [Concomitant]
  2. HALDOL [Concomitant]
  3. NORCO [Concomitant]
     Indication: PAIN
     Dates: start: 20040915
  4. SEROQUEL [Suspect]
     Indication: DEPRESSION
     Route: 048
     Dates: start: 20040915
  5. SEROQUEL [Suspect]
     Dosage: 1 DAILY
     Route: 048
     Dates: start: 20040921, end: 20051026
  6. NORCO [Concomitant]
     Indication: DISCOMFORT
     Dates: start: 20040915
  7. VICODIN ES [Concomitant]
     Indication: PAIN
     Route: 048
     Dates: start: 20050310
  8. SEROQUEL [Suspect]
     Indication: SLEEP DISORDER
     Route: 048
     Dates: start: 20040915
  9. SEROQUEL [Suspect]
     Dosage: 1 DAILY
     Route: 048
     Dates: start: 20040921, end: 20051026
  10. FLEXERIL [Concomitant]
     Indication: MUSCLE SPASMS
     Route: 048
     Dates: start: 20040915
  11. THORAZINE [Concomitant]
  12. PAXIL [Concomitant]
     Dates: start: 20040915

REACTIONS (4)
  - LIMB INJURY [None]
  - GLYCOSURIA [None]
  - OBESITY [None]
  - TYPE 2 DIABETES MELLITUS [None]
